FAERS Safety Report 24051727 (Version 1)
Quarter: 2024Q3

REPORT INFORMATION
  Report Type: Spontaneous
  Country: ZA (occurrence: None)
  Receive Date: 20240704
  Receipt Date: 20240704
  Transmission Date: 20241016
  Serious: Yes (Other)
  Sender: ASTRAZENECA
  Company Number: 2024A148906

PATIENT
  Age: 81 Year
  Sex: Female

DRUGS (8)
  1. DAPAGLIFLOZIN PROPANEDIOL [Suspect]
     Active Substance: DAPAGLIFLOZIN PROPANEDIOL
     Indication: Diabetes mellitus
     Route: 048
  2. ZOPICLONE [Concomitant]
     Active Substance: ZOPICLONE
     Indication: Sleep disorder
  3. FLUOXETINE HYDROCHLORIDE [Concomitant]
     Active Substance: FLUOXETINE HYDROCHLORIDE
     Indication: Depression
  4. ECOTRIN [Concomitant]
     Active Substance: ASPIRIN
     Indication: Anticoagulant therapy
  5. LIPOGEN [Concomitant]
     Indication: Blood cholesterol
  6. SLOW -MAG [Concomitant]
  7. URIZONE SINGLE [Concomitant]
     Dosage: 3 G
  8. CARVEDILOL [Concomitant]
     Active Substance: CARVEDILOL

REACTIONS (1)
  - Myocardial infarction [Unknown]
